FAERS Safety Report 5920818-3 (Version None)
Quarter: 2008Q4

REPORT INFORMATION
  Report Type: 
  Country: None (occurrence: None)
  Receive Date: 20081016
  Receipt Date: 20081013
  Transmission Date: 20090506
  Serious: Yes (Hospitalization)
  Sender: FDA-Public Use
  Company Number: FR-MERCK-0809FRA00021

PATIENT
  Age: 73 Year
  Sex: Female

DRUGS (4)
  1. JANUVIA [Suspect]
     Indication: TYPE 2 DIABETES MELLITUS
     Route: 048
     Dates: start: 20080701, end: 20080812
  2. METFORMIN [Concomitant]
     Indication: TYPE 2 DIABETES MELLITUS
     Route: 048
     Dates: end: 20080812
  3. HYDROCHLOROTHIAZIDE AND VALSARTAN [Concomitant]
     Indication: HYPERTENSION
     Route: 048
  4. ASPIRIN LYSINE [Concomitant]
     Route: 048
     Dates: end: 20080901

REACTIONS (10)
  - ALANINE AMINOTRANSFERASE INCREASED [None]
  - ASPARTATE AMINOTRANSFERASE INCREASED [None]
  - BLOOD ALKALINE PHOSPHATASE INCREASED [None]
  - BLOOD BILIRUBIN INCREASED [None]
  - CHOLELITHIASIS [None]
  - DIABETIC KETOACIDOSIS [None]
  - GAMMA-GLUTAMYLTRANSFERASE INCREASED [None]
  - PANCREATIC CARCINOMA [None]
  - PANCREATITIS ACUTE [None]
  - URINARY TRACT INFECTION [None]
